FAERS Safety Report 11075832 (Version 2)
Quarter: 2015Q3

REPORT INFORMATION
  Report Type: Spontaneous
  Country: US (occurrence: US)
  Receive Date: 20150429
  Receipt Date: 20150701
  Transmission Date: 20151125
  Serious: Yes (Other)
  Sender: FDA-Public Use
  Company Number: US-PFIZER INC-2015141576

PATIENT
  Age: 84 Year
  Sex: Male
  Weight: 81.6 kg

DRUGS (1)
  1. XALKORI [Suspect]
     Active Substance: CRIZOTINIB
     Indication: LUNG CANCER METASTATIC
     Dosage: 250 MG, 2X/DAY
     Dates: start: 20150410, end: 20150422

REACTIONS (8)
  - Liver disorder [Unknown]
  - Hepatic enzyme increased [Not Recovered/Not Resolved]
  - Decreased appetite [Unknown]
  - Pneumonia [Unknown]
  - Dyspnoea [Unknown]
  - Pulmonary oedema [Not Recovered/Not Resolved]
  - Thrombosis [Not Recovered/Not Resolved]
  - Product use issue [Unknown]

NARRATIVE: CASE EVENT DATE: 20150415
